FAERS Safety Report 26207825 (Version 1)
Quarter: 2025Q4

REPORT INFORMATION
  Report Type: Spontaneous
  Country: US (occurrence: None)
  Receive Date: 20251224
  Receipt Date: 20251224
  Transmission Date: 20260118
  Serious: Yes (Other)
  Sender: FDA-CTU
  Company Number: None

PATIENT
  Age: 26 Year
  Sex: Female

DRUGS (1)
  1. DUPIXENT [Suspect]
     Active Substance: DUPILUMAB
     Indication: Dermatitis atopic
     Dosage: OTHER QUANTITY : 300MG/2ML;?OTHER FREQUENCY : EVERY 14 DAYS;
     Route: 058
     Dates: start: 202511

REACTIONS (3)
  - Urticaria [None]
  - Rash [None]
  - Injection related reaction [None]

NARRATIVE: CASE EVENT DATE: 20251121
